FAERS Safety Report 12959904 (Version 1)
Quarter: 2016Q4

REPORT INFORMATION
  Report Type: Spontaneous
  Country: US (occurrence: US)
  Receive Date: 20161121
  Receipt Date: 20161121
  Transmission Date: 20170207
  Serious: Yes (Life-Threatening)
  Sender: FDA-Public Use
  Company Number: US-HORIZON-PRE-0333-2016

PATIENT
  Age: 26 Year
  Sex: Male

DRUGS (1)
  1. PREDNISONE. [Suspect]
     Active Substance: PREDNISONE
     Indication: RASH PAPULAR
     Dosage: 10 DAY COURSE
     Route: 048

REACTIONS (1)
  - Symptom masked [Recovered/Resolved]
